FAERS Safety Report 8617851 (Version 3)
Quarter: 2013Q4

REPORT INFORMATION
  Report Type: Spontaneous
  Country: US (occurrence: US)
  Receive Date: 20120615
  Receipt Date: 20131105
  Transmission Date: 20140711
  Serious: Yes (Hospitalization)
  Sender: FDA-Public Use
  Company Number: US-009507513-1206USA01221

PATIENT
  Age: 81 Year
  Sex: Male

DRUGS (9)
  1. PRINIVIL [Suspect]
     Route: 048
  2. MK-9355 [Concomitant]
  3. CELECOXIB [Concomitant]
  4. MK-0805 [Concomitant]
     Indication: RENAL FAILURE
  5. MK-9379 [Concomitant]
     Indication: RENAL FAILURE
  6. INSULIN [Concomitant]
  7. WARFARIN [Concomitant]
  8. VANCOMYCIN [Concomitant]
     Indication: OSTEOMYELITIS
  9. AZTREONAM [Concomitant]
     Indication: OSTEOMYELITIS

REACTIONS (1)
  - Hypotensive transfusion reaction [Recovered/Resolved]
